FAERS Safety Report 11498338 (Version 2)
Quarter: 2016Q4

REPORT INFORMATION
  Report Type: Spontaneous
  Country: US (occurrence: US)
  Receive Date: 20150911
  Receipt Date: 20161104
  Transmission Date: 20170206
  Serious: Yes (Hospitalization)
  Sender: FDA-Public Use
  Company Number: US-DSJP-DSU-2015-118905

PATIENT

DRUGS (4)
  1. BENICAR HCT [Suspect]
     Active Substance: HYDROCHLOROTHIAZIDE\OLMESARTAN MEDOXOMIL
     Indication: HYPERTENSION
     Dosage: 40-12.5 MG
     Dates: start: 2013, end: 2014
  2. BABY ASPIRIN [Concomitant]
     Active Substance: ASPIRIN
     Indication: PRODUCT USED FOR UNKNOWN INDICATION
     Dosage: 81 MG, QD
     Dates: start: 1999, end: 2014
  3. BENICAR [Suspect]
     Active Substance: OLMESARTAN MEDOXOMIL
     Indication: PRODUCT USED FOR UNKNOWN INDICATION
     Dosage: UNK
  4. AMLODIPINE [Concomitant]
     Active Substance: AMLODIPINE BESYLATE
     Indication: PRODUCT USED FOR UNKNOWN INDICATION
     Dosage: 5 MG, QD
     Dates: start: 2013, end: 2013

REACTIONS (16)
  - Malabsorption [Unknown]
  - Duodenitis [Unknown]
  - Intestinal metaplasia [Unknown]
  - Hiatus hernia [Unknown]
  - Haemorrhoids [Unknown]
  - Renal failure [Unknown]
  - Hypokalaemia [Unknown]
  - Gastroenteritis [Unknown]
  - Renal disorder [Unknown]
  - Coeliac disease [Unknown]
  - Intestinal intraepithelial lymphocytes increased [Unknown]
  - Chronic gastritis [Unknown]
  - Mucosal membrane hyperplasia [Unknown]
  - Milk allergy [Unknown]
  - Acute kidney injury [Unknown]
  - Milk soy protein intolerance [Unknown]

NARRATIVE: CASE EVENT DATE: 20140514
